FAERS Safety Report 15689991 (Version 1)
Quarter: 2018Q4

REPORT INFORMATION
  Report Type: Spontaneous
  Country: CN (occurrence: CN)
  Receive Date: 20181205
  Receipt Date: 20181205
  Transmission Date: 20190205
  Serious: Yes (Other)
  Sender: FDA-Public Use
  Company Number: CN-PFIZER INC-2018493478

PATIENT
  Age: 73 Year
  Sex: Male

DRUGS (1)
  1. CYTOSAR [Suspect]
     Active Substance: CYTARABINE
     Indication: ACUTE MYELOID LEUKAEMIA
     Dosage: 0.01 G, 2X/DAY
     Route: 058
     Dates: start: 20180930, end: 20181008

REACTIONS (3)
  - Tuberculosis of eye [Recovering/Resolving]
  - Eye infection [Recovering/Resolving]
  - Injection site pain [Recovering/Resolving]

NARRATIVE: CASE EVENT DATE: 20181003
